FAERS Safety Report 4527437-4 (Version None)
Quarter: 2004Q4

REPORT INFORMATION
  Report Type: 
  Country: None (occurrence: None)
  Receive Date: 20041215
  Receipt Date: 20041118
  Transmission Date: 20050328
  Serious: Yes (Other)
  Sender: FDA-Public Use
  Company Number: 200418952US

PATIENT
  Age: 28 Year
  Sex: Female

DRUGS (1)
  1. KETEK [Suspect]
     Indication: SINUSITIS
     Route: 048
     Dates: start: 20041104, end: 20041106

REACTIONS (9)
  - ACCOMMODATION DISORDER [None]
  - AMBLYOPIA [None]
  - DIPLOPIA [None]
  - DYSGRAPHIA [None]
  - IMPAIRED WORK ABILITY [None]
  - READING DISORDER [None]
  - VISION BLURRED [None]
  - VISUAL ACUITY REDUCED [None]
  - VISUAL DISTURBANCE [None]
